FAERS Safety Report 16990400 (Version 1)
Quarter: 2019Q4

REPORT INFORMATION
  Report Type: Spontaneous
  Country: US (occurrence: US)
  Receive Date: 20191102
  Receipt Date: 20191102
  Transmission Date: 20200122
  Serious: Yes (Hospitalization)
  Sender: FDA-Public Use
  Company Number: None

PATIENT
  Age: 61 Year
  Sex: Female
  Weight: 69.75 kg

DRUGS (7)
  1. MAGNESIUM 300MG [Concomitant]
  2. LEVEMIR 25 [Concomitant]
  3. LYRICA 200 MG [Concomitant]
  4. INVOKANA [Concomitant]
     Active Substance: CANAGLIFLOZIN
  5. OMEPRAZOLE 20 MG [Concomitant]
     Active Substance: OMEPRAZOLE
  6. VIT D 5,000 UNITS [Concomitant]
  7. OTEZLA [Suspect]
     Active Substance: APREMILAST
     Indication: BEHCET^S SYNDROME
     Dosage: ?          QUANTITY:1 TABLET(S);?
     Route: 048
     Dates: start: 20190831, end: 20191029

REACTIONS (7)
  - White blood cell count decreased [None]
  - Vomiting [None]
  - Abdominal pain [None]
  - Platelet count decreased [None]
  - Diarrhoea [None]
  - Nausea [None]
  - Hepatic cirrhosis [None]

NARRATIVE: CASE EVENT DATE: 20190909
